FAERS Safety Report 6876455 (Version 3)
Quarter: 2023Q2

REPORT INFORMATION
  Report Type: Report from Study
  Country: US (occurrence: US)
  Receive Date: 20090108
  Receipt Date: 20230627
  Transmission Date: 20230722
  Serious: Yes (Death, Hospitalization)
  Sender: FDA-Public Use
  Company Number: US-GENENTECH-275014

PATIENT
  Age: 71 Year
  Sex: Male

DRUGS (3)
  1. BEVACIZUMAB [Suspect]
     Active Substance: BEVACIZUMAB
     Indication: Non-small cell lung cancer
     Dosage: 15 MG/KG, Q21D
     Route: 065
     Dates: start: 20081030
  2. VINORELBINE [Concomitant]
     Active Substance: VINORELBINE TARTRATE
     Indication: Non-small cell lung cancer
     Dosage: 30/MG/M2, UNK
     Route: 042
     Dates: start: 20081030
  3. CISPLATIN [Concomitant]
     Active Substance: CISPLATIN
     Indication: Non-small cell lung cancer
     Dosage: 75 MG/M2, Q21D
     Route: 042
     Dates: start: 20081030

REACTIONS (15)
  - Febrile neutropenia [Fatal]
  - White blood cell count decreased [Unknown]
  - Renal failure [Unknown]
  - Haemoglobin decreased [Unknown]
  - Death [Fatal]
  - Acute kidney injury [Unknown]
  - Neutrophil count decreased [Unknown]
  - Diarrhoea [Unknown]
  - White blood cell count decreased [Unknown]
  - Anaemia [Unknown]
  - Platelet count decreased [Unknown]
  - Tachypnoea [Unknown]
  - Lethargy [Unknown]
  - Pneumonia [Unknown]
  - Hypotension [Unknown]

NARRATIVE: CASE EVENT DATE: 20081219
